FAERS Safety Report 16833291 (Version 2)
Quarter: 2025Q4

REPORT INFORMATION
  Report Type: Spontaneous
  Country: EU (occurrence: EU)
  Receive Date: 20190920
  Receipt Date: 20251217
  Transmission Date: 20260118
  Serious: Yes (Other)
  Sender: ROCHE
  Company Number: EU-NOVPHSZ-PHHY2019CZ194469

PATIENT
  Age: 42 Year
  Sex: Female

DRUGS (6)
  1. PERTUZUMAB [Suspect]
     Active Substance: PERTUZUMAB
     Indication: HER2 positive breast cancer
     Dates: start: 201503, end: 201901
  2. TRASTUZUMAB [Suspect]
     Active Substance: TRASTUZUMAB
     Indication: HER2 positive breast cancer
     Dosage: POWDER FOR CONCENTRATE FOR SOLUTION FOR INFUSION
     Dates: start: 201503
  3. TRASTUZUMAB [Suspect]
     Active Substance: TRASTUZUMAB
     Dosage: POWDER FOR CONCENTRATE FOR SOLUTION FOR INFUSION
     Dates: start: 201506, end: 201901
  4. DOCETAXEL [Suspect]
     Active Substance: DOCETAXEL
     Indication: HER2 positive breast cancer
     Dates: start: 201506
  5. DOCETAXEL [Suspect]
     Active Substance: DOCETAXEL
     Dates: start: 201503, end: 201506
  6. GOSERELIN [Concomitant]
     Active Substance: GOSERELIN
     Indication: Ovarian dysfunction
     Dosage: UNK

REACTIONS (3)
  - Metastases to bone [Recovering/Resolving]
  - Malignant neoplasm progression [Unknown]
  - Breast cancer [Recovering/Resolving]

NARRATIVE: CASE EVENT DATE: 20190101
